FAERS Safety Report 17109229 (Version 1)
Quarter: 2019Q4

REPORT INFORMATION
  Report Type: Spontaneous
  Country: ZA (occurrence: ZA)
  Receive Date: 20191204
  Receipt Date: 20191204
  Transmission Date: 20200122
  Serious: Yes (Death, Other)
  Sender: FDA-Public Use
  Company Number: ZA-LUPIN PHARMACEUTICALS INC.-2019-07941

PATIENT
  Age: 70 Year
  Sex: Male

DRUGS (5)
  1. ECOTRIN [Suspect]
     Active Substance: ASPIRIN
     Indication: ANTICOAGULANT THERAPY
     Dosage: 81 MILLIGRAM
     Route: 048
     Dates: end: 201911
  2. LISORETIC [Suspect]
     Active Substance: HYDROCHLOROTHIAZIDE\LISINOPRIL
     Indication: HYPERTENSION
     Dosage: 10/12.5 MILLIGRAM
     Route: 048
     Dates: end: 201911
  3. CIPLA-SIMVASTATIN [Suspect]
     Active Substance: SIMVASTATIN
     Indication: BLOOD CHOLESTEROL ABNORMAL
     Dosage: 40 MILLIGRAM
     Route: 048
     Dates: end: 201911
  4. GLUCOPHAGE [Suspect]
     Active Substance: METFORMIN HYDROCHLORIDE
     Indication: DIABETES MELLITUS
     Dosage: 500 MILLIGRAM
     Route: 048
     Dates: end: 201911
  5. CARBILEV [Suspect]
     Active Substance: CARBIDOPA\LEVODOPA
     Indication: CARDIAC DISORDER
     Dosage: 25/100 MILLIGRAM
     Route: 048
     Dates: end: 201911

REACTIONS (1)
  - Myocardial infarction [Fatal]

NARRATIVE: CASE EVENT DATE: 20191111
